FAERS Safety Report 19757485 (Version 4)
Quarter: 2022Q1

REPORT INFORMATION
  Report Type: Report from Study
  Country: CA (occurrence: CA)
  Receive Date: 20210827
  Receipt Date: 20220318
  Transmission Date: 20220423
  Serious: Yes (Death, Other)
  Sender: FDA-Public Use
  Company Number: CA-OTSUKA-2021_012367

PATIENT
  Sex: Female

DRUGS (1)
  1. CEDAZURIDINE\DECITABINE [Suspect]
     Active Substance: CEDAZURIDINE\DECITABINE
     Indication: Myelodysplastic syndrome
     Dosage: UNK, QD 1-5 DAYS EVERY 28 DAY CYCLE)
     Route: 065
     Dates: start: 20201127, end: 20220316

REACTIONS (6)
  - Death [Fatal]
  - Transfusion [Unknown]
  - Full blood count abnormal [Unknown]
  - Malaise [Unknown]
  - Peripheral swelling [Recovering/Resolving]
  - Therapy interrupted [Unknown]
